FAERS Safety Report 7508297-6 (Version None)
Quarter: 2011Q2

REPORT INFORMATION
  Report Type: 
  Country: None (occurrence: None)
  Receive Date: 20110527
  Receipt Date: 20110520
  Transmission Date: 20111010
  Serious: Yes (Death, Other)
  Sender: FDA-Public Use
  Company Number: PL-TYCO HEALTHCARE/MALLINCKRODT-T201000696

PATIENT

DRUGS (2)
  1. METHADOSE [Suspect]
     Dosage: UNK
     Route: 063
  2. METHADOSE [Suspect]
     Dosage: UNK
     Route: 064

REACTIONS (3)
  - DRUG WITHDRAWAL SYNDROME NEONATAL [None]
  - INTOXICATION BY BREAST FEEDING [None]
  - DRUG EXPOSURE DURING PREGNANCY [None]
